FAERS Safety Report 6397692-7 (Version None)
Quarter: 2009Q4

REPORT INFORMATION
  Report Type: 
  Country: None (occurrence: None)
  Receive Date: 20091012
  Receipt Date: 20091001
  Transmission Date: 20100525
  Serious: Yes (Hospitalization, Other)
  Sender: FDA-Public Use
  Company Number: US-CELGENEUS-163-21880-09060044

PATIENT
  Sex: Female

DRUGS (1)
  1. REVLIMID [Suspect]
     Route: 048
     Dates: start: 20060601

REACTIONS (3)
  - CARDIAC PACEMAKER INSERTION [None]
  - DYSPNOEA [None]
  - HAEMOGLOBIN DECREASED [None]
